FAERS Safety Report 10677964 (Version 1)
Quarter: 2014Q4

REPORT INFORMATION
  Report Type: Report from Study
  Country: BE (occurrence: BE)
  Receive Date: 20141229
  Receipt Date: 20141229
  Transmission Date: 20150529
  Serious: Yes (Other)
  Sender: FDA-Public Use
  Company Number: BE-BIOGENIDEC-2014BI135509

PATIENT
  Age: 59 Year
  Sex: Female

DRUGS (7)
  1. RENITEC [Concomitant]
     Active Substance: ENALAPRIL MALEATE
  2. DETRUSTOL RETARD [Concomitant]
  3. AVONEX [Suspect]
     Active Substance: INTERFERON BETA-1A
     Indication: MULTIPLE SCLEROSIS
     Route: 030
     Dates: start: 20000110
  4. ZALDIAR [Concomitant]
     Active Substance: ACETAMINOPHEN\TRAMADOL HYDROCHLORIDE
  5. UNI DIAMICRON [Concomitant]
     Active Substance: GLICLAZIDE
  6. DOGMATIL [Concomitant]
     Active Substance: SULPIRIDE
  7. PRAREDUCT [Concomitant]

REACTIONS (2)
  - Meniscus operation [Recovered/Resolved]
  - Influenza like illness [Unknown]

NARRATIVE: CASE EVENT DATE: 201409
